FAERS Safety Report 9220171 (Version 2)
Quarter: 2018Q3

REPORT INFORMATION
  Report Type: Spontaneous
  Country: IT (occurrence: IT)
  Receive Date: 20130409
  Receipt Date: 20180919
  Transmission Date: 20181010
  Serious: Yes (Hospitalization)
  Sender: FDA-Public Use
  Company Number: IT-PFIZER INC-2013108008

PATIENT
  Age: 65 Year
  Sex: Female
  Weight: 70 kg

DRUGS (10)
  1. PANTORC [Concomitant]
     Active Substance: PANTOPRAZOLE SODIUM
     Dosage: 40 MG, UNK
     Dates: start: 20130325
  2. TACHIPIRINA [Concomitant]
     Active Substance: ACETAMINOPHEN
     Dosage: 2 G, UNK
     Dates: start: 20130325
  3. TRAMADOL HYDROCHLORIDE. [Concomitant]
     Active Substance: TRAMADOL HYDROCHLORIDE
     Dosage: 1 DF, UNK
     Dates: start: 20130306, end: 20130324
  4. RIFADIN [Interacting]
     Active Substance: RIFAMPIN
     Indication: ENTEROBACTER TEST POSITIVE
     Dosage: 600 MG, 2X/DAY
     Route: 042
     Dates: start: 20130301, end: 20130327
  5. LYRICA [Concomitant]
     Active Substance: PREGABALIN
     Dosage: 1 DF, UNK
     Route: 048
     Dates: start: 20130306, end: 20130326
  6. OMEPRAZOLE. [Concomitant]
     Active Substance: OMEPRAZOLE
     Dosage: UNK
     Dates: start: 20130306, end: 20130324
  7. VANCOMYCIN HCL [Suspect]
     Active Substance: VANCOMYCIN HYDROCHLORIDE
     Indication: ENTEROBACTER TEST POSITIVE
     Dosage: 2 G, 1X/DAY
     Route: 042
     Dates: start: 20130301, end: 20130326
  8. LEDERFOLIN [Concomitant]
     Active Substance: LEUCOVORIN CALCIUM
     Dosage: 7.5 MG, UNK
     Dates: start: 20130325
  9. LEVOFLOXACIN KABI [Interacting]
     Active Substance: LEVOFLOXACIN
     Indication: ENTEROBACTER TEST POSITIVE
     Dosage: 750 MG, 1X/DAY
     Route: 042
     Dates: start: 20130301, end: 20130326
  10. ENOXAPARIN [Concomitant]
     Active Substance: ENOXAPARIN
     Dosage: 4 KIU, UNK
     Dates: start: 20130306, end: 20130324

REACTIONS (4)
  - Urticaria [Recovering/Resolving]
  - Erythema multiforme [Recovering/Resolving]
  - Drug interaction [Recovering/Resolving]
  - Laryngeal oedema [Recovering/Resolving]

NARRATIVE: CASE EVENT DATE: 20130326
